FAERS Safety Report 16373657 (Version 2)
Quarter: 2019Q2

REPORT INFORMATION
  Report Type: Report from Study
  Country: US (occurrence: US)
  Receive Date: 20190530
  Receipt Date: 20190606
  Transmission Date: 20190711
  Serious: No
  Sender: FDA-Public Use
  Company Number: US-SA-2019SA145969

PATIENT
  Age: 61 Year
  Sex: Female

DRUGS (1)
  1. ALIROCUMAB [Suspect]
     Active Substance: ALIROCUMAB
     Indication: BLOOD CHOLESTEROL INCREASED
     Dosage: UNK UNK, QOW
     Dates: start: 201812, end: 201901

REACTIONS (3)
  - Peripheral swelling [Unknown]
  - Muscular weakness [Unknown]
  - Pain in extremity [Unknown]
